FAERS Safety Report 7521887-X (Version None)
Quarter: 2011Q2

REPORT INFORMATION
  Report Type: 
  Country: None (occurrence: None)
  Receive Date: 20110603
  Receipt Date: 20110523
  Transmission Date: 20111010
  Serious: Yes (Death, Life-Threatening)
  Sender: FDA-Public Use
  Company Number: US-CELGENEUS-163-21880-11011808

PATIENT
  Sex: Female

DRUGS (9)
  1. NEUPOGEN [Concomitant]
     Indication: NEUTROPENIA
     Dosage: 480 MICROGRAM
     Route: 058
     Dates: start: 20110103, end: 20110111
  2. ZANTAC [Concomitant]
     Dosage: 75 MILLIGRAM
     Route: 048
     Dates: end: 20110111
  3. LEVAQUIN [Concomitant]
     Dosage: 250 MILLIGRAM
     Route: 048
     Dates: start: 20110103, end: 20110109
  4. LEVAQUIN [Concomitant]
     Indication: ANTI-INFECTIVE THERAPY
  5. LOPRESSOR [Concomitant]
     Indication: HYPERTENSION
  6. VALTREX [Concomitant]
     Indication: ANTI-INFECTIVE THERAPY
  7. LOPRESSOR [Concomitant]
     Dosage: 25 MILLIGRAM
     Route: 048
     Dates: end: 20110111
  8. REVLIMID [Suspect]
     Indication: NON-HODGKIN'S LYMPHOMA
     Dosage: 10 MILLIGRAM
     Route: 048
     Dates: start: 20101228, end: 20110103
  9. VALTREX [Concomitant]
     Dosage: 400 MILLIGRAM
     Route: 048
     Dates: start: 20110103, end: 20110111

REACTIONS (3)
  - NON-HODGKIN'S LYMPHOMA [None]
  - PLEURAL EFFUSION [None]
  - RESPIRATORY FAILURE [None]
